FAERS Safety Report 4433684-2 (Version None)
Quarter: 2004Q3

REPORT INFORMATION
  Report Type: 
  Country: None (occurrence: None)
  Receive Date: 20040826
  Receipt Date: 20040706
  Transmission Date: 20050211
  Serious: No
  Sender: FDA-Public Use
  Company Number: US-GLAXOSMITHKLINE-A0517188A

PATIENT
  Sex: Male

DRUGS (2)
  1. AVODART [Suspect]
     Indication: ILL-DEFINED DISORDER
     Route: 048
  2. FLOMAX [Suspect]
     Indication: ILL-DEFINED DISORDER

REACTIONS (1)
  - BLOOD PRESSURE DECREASED [None]
